FAERS Safety Report 7030942-2 (Version None)
Quarter: 2010Q4

REPORT INFORMATION
  Report Type: 
  Country: None (occurrence: None)
  Receive Date: 20101006
  Receipt Date: 20101001
  Transmission Date: 20110411
  Serious: Yes (Hospitalization)
  Sender: FDA-Public Use
  Company Number: FR-TEVA-250456ISR

PATIENT
  Sex: Female

DRUGS (7)
  1. VINCRISTINE [Suspect]
     Indication: LYMPHOCYTIC LEUKAEMIA
     Dosage: 2 MG/COURSE
     Route: 042
     Dates: start: 20100813, end: 20100906
  2. CYTARABINE [Suspect]
     Indication: LYMPHOCYTIC LEUKAEMIA
     Dosage: 30  MG/COURSE
     Route: 042
     Dates: start: 20100814, end: 20100814
  3. METHOTREXATE [Suspect]
     Indication: LYMPHOCYTIC LEUKAEMIA
     Dosage: 15 MG/COURSE
     Route: 037
     Dates: start: 20100807, end: 20100814
  4. ASPARAGINASE [Suspect]
     Indication: LYMPHOCYTIC LEUKAEMIA
     Dosage: 8800 IU/COURSE
     Route: 030
     Dates: start: 20100813, end: 20100910
  5. ANTITHROMBIN III [Suspect]
     Indication: ANTITHROMBIN III DEFICIENCY
     Dosage: 100 IU/ML
     Route: 042
     Dates: start: 20100826, end: 20100918
  6. IMMUNE GLOBULIN (HUMAN) [Suspect]
     Indication: THROMBOCYTOPENIA
     Dosage: 25 G, 20 G, 20 G
     Route: 042
     Dates: start: 20100827, end: 20100901
  7. ALBUMIN (HUMAN) [Suspect]
     Indication: HYPOALBUMINAEMIA
     Dosage: 50 G, 20 G
     Route: 042
     Dates: start: 20100830, end: 20100917

REACTIONS (1)
  - PULMONARY EMBOLISM [None]
